FAERS Safety Report 9315109 (Version 1)
Quarter: 2013Q2

REPORT INFORMATION
  Report Type: Spontaneous
  Country: US (occurrence: US)
  Receive Date: 20130529
  Receipt Date: 20130529
  Transmission Date: 20140414
  Serious: No
  Sender: FDA-Public Use
  Company Number: US-MYLANLABS-2012S1021000

PATIENT
  Sex: Male
  Weight: 100.7 kg

DRUGS (8)
  1. BUPROPION HYDROCHLORIDE [Suspect]
     Indication: DEPRESSION
     Route: 048
  2. PHENYTOIN SODIUM [Suspect]
     Indication: SUBDURAL HAEMATOMA
     Route: 048
  3. PHENYTOIN SODIUM [Suspect]
     Indication: SUBDURAL HAEMATOMA
     Route: 048
  4. GLIPIZIDE [Suspect]
     Indication: DIABETES MELLITUS
     Route: 048
  5. CLONIDINE HYDROCHLORIDE [Suspect]
     Indication: BLOOD PRESSURE INCREASED
     Route: 048
  6. DILTIAZEM [Concomitant]
     Indication: BLOOD PRESSURE INCREASED
     Dosage: 1 CAPSULE QD
  7. ALLOPURINOL [Concomitant]
     Indication: GOUT
  8. LYRICA [Concomitant]
     Indication: NEUROPATHY PERIPHERAL

REACTIONS (3)
  - Dyspnoea [Not Recovered/Not Resolved]
  - Feeling abnormal [Not Recovered/Not Resolved]
  - Drug interaction [Not Recovered/Not Resolved]
